FAERS Safety Report 16412982 (Version 1)
Quarter: 2019Q2

REPORT INFORMATION
  Report Type: Spontaneous
  Country: US (occurrence: US)
  Receive Date: 20190611
  Receipt Date: 20190611
  Transmission Date: 20190711
  Serious: Yes (Hospitalization, Other)
  Sender: FDA-Public Use
  Company Number: US-AUROBINDO-AUR-APL-2019-031843

PATIENT

DRUGS (4)
  1. ALPRAZOLAM. [Suspect]
     Active Substance: ALPRAZOLAM
     Indication: PRODUCT USED FOR UNKNOWN INDICATION
     Dosage: UNK
     Route: 065
  2. TRAMADOL. [Suspect]
     Active Substance: TRAMADOL
     Indication: PRODUCT USED FOR UNKNOWN INDICATION
     Dosage: UNK
     Route: 065
  3. FENTANYL. [Suspect]
     Active Substance: FENTANYL
     Indication: PRODUCT USED FOR UNKNOWN INDICATION
     Dosage: UNK
     Route: 065
  4. HEROIN [Suspect]
     Active Substance: DIAMORPHINE
     Indication: PRODUCT USED FOR UNKNOWN INDICATION
     Dosage: UNK
     Route: 065

REACTIONS (13)
  - Leukoencephalopathy [Unknown]
  - Neuralgia [Unknown]
  - Hemiparesis [Unknown]
  - Hypoxia [Unknown]
  - Respiration abnormal [Unknown]
  - Drug abuse [Unknown]
  - Toxicity to various agents [Unknown]
  - Acute respiratory failure [Unknown]
  - Unresponsive to stimuli [Unknown]
  - Organ failure [Unknown]
  - Cardiogenic shock [Unknown]
  - Hypotension [Unknown]
  - Multiple organ dysfunction syndrome [Unknown]
